APPROVED DRUG PRODUCT: VECTICAL
Active Ingredient: CALCITRIOL
Strength: 3MCG/GM
Dosage Form/Route: OINTMENT;TOPICAL
Application: N022087 | Product #001
Applicant: GALDERMA LABORATORIES LP
Approved: Jan 23, 2009 | RLD: Yes | RS: Yes | Type: RX